FAERS Safety Report 5062511-8 (Version None)
Quarter: 2006Q3

REPORT INFORMATION
  Report Type: 
  Country: None (occurrence: None)
  Receive Date: 20060721
  Receipt Date: 20060705
  Transmission Date: 20061208
  Serious: Yes (Other)
  Sender: FDA-Public Use
  Company Number: FR200607000312

PATIENT
  Age: 70 Year
  Sex: Male

DRUGS (2)
  1. GEMZAR [Suspect]
     Indication: NON-SMALL CELL LUNG CANCER
     Dosage: 1250 MG/M2, OTHER, INTRAVENOUS
     Route: 042
     Dates: start: 20060501
  2. CARBOPLATIN [Concomitant]

REACTIONS (2)
  - THROMBOCYTHAEMIA [None]
  - THROMBOCYTOPENIA [None]
